FAERS Safety Report 25122812 (Version 1)
Quarter: 2025Q1

REPORT INFORMATION
  Report Type: Spontaneous
  Country: IN (occurrence: IN)
  Receive Date: 20250326
  Receipt Date: 20250326
  Transmission Date: 20250409
  Serious: Yes (Other)
  Sender: HETERO
  Company Number: IN-AMAROX PHARMA-HET2025IN01354

PATIENT
  Age: 36 Year
  Sex: Female

DRUGS (4)
  1. TENOFOVIR [Suspect]
     Active Substance: TENOFOVIR
     Indication: Product used for unknown indication
     Route: 065
     Dates: start: 2021, end: 202311
  2. LAMIVUDINE [Concomitant]
     Active Substance: LAMIVUDINE
     Indication: Product used for unknown indication
     Route: 065
     Dates: start: 2021
  3. RITONAVIR [Concomitant]
     Active Substance: RITONAVIR
     Indication: Product used for unknown indication
     Route: 065
     Dates: start: 2021
  4. ATAZANAVIR [Concomitant]
     Active Substance: ATAZANAVIR
     Indication: Product used for unknown indication
     Route: 065
     Dates: start: 2021

REACTIONS (3)
  - Femoral neck fracture [Recovering/Resolving]
  - Osteoporotic fracture [Recovering/Resolving]
  - Fanconi syndrome [Recovering/Resolving]

NARRATIVE: CASE EVENT DATE: 20231101
